FAERS Safety Report 5469330-9 (Version None)
Quarter: 2007Q3

REPORT INFORMATION
  Report Type: 
  Country: None (occurrence: None)
  Receive Date: 20070927
  Receipt Date: 20070924
  Transmission Date: 20080115
  Serious: Yes (Other)
  Sender: FDA-Public Use
  Company Number: FR-JNJFOC-20041203534

PATIENT
  Sex: Male

DRUGS (14)
  1. TMC114 [Suspect]
     Route: 048
  2. TMC114 [Suspect]
     Indication: HIV INFECTION
     Route: 048
  3. RITONAVIR [Suspect]
     Indication: HIV INFECTION
     Route: 048
  4. TENOFOVIR DISOPROXIL FUMARATE [Suspect]
     Route: 048
  5. TENOFOVIR DISOPROXIL FUMARATE [Suspect]
     Indication: HIV INFECTION
     Route: 048
  6. ENFUVIRTIDE [Concomitant]
     Indication: HIV INFECTION
     Route: 058
  7. SULFAMETHOXAZOLE [Concomitant]
     Indication: ANTIFUNGAL PROPHYLAXIS
     Dosage: START PRE-TRIAL
     Route: 048
  8. TRIMETHOPRIM [Concomitant]
     Indication: ANTIFUNGAL PROPHYLAXIS
     Dosage: STARTED PRE-TRIAL
     Route: 048
  9. AMITRIPTYLINE HCL [Concomitant]
     Indication: NEUROPATHY
     Dosage: STARTED PRE-TRIAL
     Route: 048
  10. AMPHOTERICIN B [Concomitant]
     Indication: VISCERAL LEISHMANIASIS
     Dosage: STARTED PRE-TRIAL
     Route: 042
  11. AMPHOTERICIN B [Concomitant]
     Indication: ANGIOGRAM
     Route: 042
  12. AZITHROMYCIN [Concomitant]
     Indication: PROPHYLAXIS
     Dosage: STARTED PRE-TRIAL
     Route: 048
  13. FLUORESCITE [Concomitant]
     Indication: ANGIOGRAM
     Route: 042
  14. HYDROCORTISONE [Concomitant]
     Indication: ANGIOGRAM
     Route: 042

REACTIONS (1)
  - HYPERTENSION [None]
